FAERS Safety Report 5117903-5 (Version None)
Quarter: 2006Q3

REPORT INFORMATION
  Report Type: 
  Country: None (occurrence: None)
  Receive Date: 20060929
  Receipt Date: 20060919
  Transmission Date: 20061208
  Serious: Yes (Other)
  Sender: FDA-Public Use
  Company Number: FR-ABBOTT-06P-056-0344411-00

PATIENT
  Sex: Male

DRUGS (6)
  1. KALETRA [Suspect]
     Indication: HIV INFECTION
  2. TIPRANAVIR [Suspect]
     Indication: HIV INFECTION
  3. TRIZIVIR [Suspect]
     Indication: HIV INFECTION
  4. SAQUINAVIR [Suspect]
     Indication: HIV INFECTION
  5. FOSCARNET [Concomitant]
     Indication: DRUG USE FOR UNKNOWN INDICATION
     Route: 042
  6. TMC-114 [Concomitant]
     Indication: DRUG WITHDRAWAL MAINTENANCE THERAPY

REACTIONS (4)
  - DRUG RESISTANCE [None]
  - IMMUNODEFICIENCY [None]
  - MULTIPLE-DRUG RESISTANCE [None]
  - VIRAL MUTATION IDENTIFIED [None]
